FAERS Safety Report 25261629 (Version 1)
Quarter: 2025Q2

REPORT INFORMATION
  Report Type: Spontaneous
  Country: CN (occurrence: CN)
  Receive Date: 20250502
  Receipt Date: 20250502
  Transmission Date: 20250717
  Serious: Yes (Hospitalization, Other)
  Sender: HALEON
  Company Number: CN-HALEON-2239788

PATIENT
  Age: 25 Year
  Sex: Female
  Weight: 47 kg

DRUGS (2)
  1. IBUPROFEN [Suspect]
     Active Substance: IBUPROFEN
     Indication: Pyrexia
     Route: 048
     Dates: start: 20250401, end: 20250402
  2. GANMAOLING [Suspect]
     Active Substance: ACETAMINOPHEN\CHLORPHENIRAMINE MALEATE
     Indication: Pyrexia
     Route: 048
     Dates: start: 20250401, end: 20250402

REACTIONS (19)
  - Erythema multiforme [Recovering/Resolving]
  - Oral mucosal erythema [Recovering/Resolving]
  - Genital blister [Recovering/Resolving]
  - Mouth swelling [Recovering/Resolving]
  - Erythema [Recovering/Resolving]
  - Oropharyngeal pain [Recovering/Resolving]
  - Skin erosion [Recovering/Resolving]
  - Productive cough [Recovering/Resolving]
  - Skin disorder [Recovering/Resolving]
  - Vulval ulceration [Recovering/Resolving]
  - Ulcer [Recovering/Resolving]
  - Epidermolysis [Recovering/Resolving]
  - Lip ulceration [Recovering/Resolving]
  - Lip erosion [Recovering/Resolving]
  - Vulvar erosion [Recovering/Resolving]
  - Dry skin [Recovering/Resolving]
  - Chapped lips [Recovering/Resolving]
  - Palate injury [Recovering/Resolving]
  - Secretion discharge [Recovering/Resolving]

NARRATIVE: CASE EVENT DATE: 20250402
